FAERS Safety Report 19759707 (Version 1)
Quarter: 2021Q3

REPORT INFORMATION
  Report Type: Spontaneous
  Country: CA (occurrence: CA)
  Receive Date: 20210830
  Receipt Date: 20210830
  Transmission Date: 20211014
  Serious: Yes (Hospitalization)
  Sender: FDA-Public Use
  Company Number: CA-TEVA-2021-CA-1946301

PATIENT
  Age: 82 Year
  Sex: Female

DRUGS (15)
  1. UPTRAVI [Concomitant]
     Active Substance: SELEXIPAG
  2. VITAMIN D[COLECALCIFEROL] [Concomitant]
     Active Substance: CHOLECALCIFEROL
  3. TRIAMTERENE. [Concomitant]
     Active Substance: TRIAMTERENE
  4. AMLODIPINE [Concomitant]
     Active Substance: AMLODIPINE BESYLATE
  5. INDACATEROL MALEATE [Concomitant]
     Active Substance: INDACATEROL MALEATE
  6. OXYGEN. [Concomitant]
     Active Substance: OXYGEN
  7. TRACLEER [Concomitant]
     Active Substance: BOSENTAN
  8. SILDENAFIL CITRATE. [Suspect]
     Active Substance: SILDENAFIL CITRATE
     Indication: PULMONARY ARTERIAL HYPERTENSION
     Dosage: 60 MILLIGRAM DAILY;
     Route: 048
  9. L?THYROXINE[LEVOTHYROXINE] [Concomitant]
  10. OPSUMIT [Concomitant]
     Active Substance: MACITENTAN
  11. PREVACID [Concomitant]
     Active Substance: LANSOPRAZOLE
  12. VITAMIN C [ASCORBICACID] [Concomitant]
  13. OXAZEPAM. [Concomitant]
     Active Substance: OXAZEPAM
  14. RISEDRONATE [Concomitant]
     Active Substance: RISEDRONATE SODIUM
  15. ROSUVASTATIN CALCIUM. [Concomitant]
     Active Substance: ROSUVASTATIN CALCIUM

REACTIONS (4)
  - Dyspnoea [Not Recovered/Not Resolved]
  - Blood sodium decreased [Not Recovered/Not Resolved]
  - Chest discomfort [Not Recovered/Not Resolved]
  - Blood potassium decreased [Not Recovered/Not Resolved]
